FAERS Safety Report 7717400-4 (Version None)
Quarter: 2011Q3

REPORT INFORMATION
  Report Type: 
  Country: None (occurrence: None)
  Receive Date: 20110823
  Receipt Date: 20110513
  Transmission Date: 20111222
  Serious: Yes (Hospitalization)
  Sender: FDA-Public Use
  Company Number: 20110411CINRY1939

PATIENT
  Age: 54 Year
  Sex: Female

DRUGS (33)
  1. DUONEBS (COMBIVENT /01261001/) [Concomitant]
  2. LIDODERM PATCH 5% (LIDOCAINE) [Concomitant]
  3. PROTONIX [Concomitant]
  4. VITAMIN D [Concomitant]
  5. FLONASE [Concomitant]
  6. ZOFRAN (IBUPROFEN) [Concomitant]
  7. CYMBALTA [Concomitant]
  8. DEPAKOTE [Concomitant]
  9. CINRYZE [Suspect]
     Indication: HEREDITARY ANGIOEDEMA
     Dosage: (1000 UNIT, 1 IN 4 D)
     Dates: start: 20110223
  10. CINRYZE [Suspect]
     Indication: PROPHYLAXIS
     Dosage: (1000 UNIT, 1 IN 4 D)
     Dates: start: 20110223
  11. ACYCLOVIR [Concomitant]
  12. CALCIUM CARBONATE [Concomitant]
  13. GLUCOSAMINE SULFATE (GLUCOSAMINE SULFATE) [Concomitant]
  14. ALBUTEROL MDI (SALBUTAMOL) [Concomitant]
  15. COLACE (DOCUSATE SODIUM) [Concomitant]
  16. COUMADIN [Concomitant]
  17. HYDROCHLOROTHIAZIDE [Concomitant]
  18. METAMUCIL (PLANTAGO OVATA) [Concomitant]
  19. ADVAIR DISKUS 100/50 [Concomitant]
  20. NEURONTIN [Concomitant]
  21. OXYGEN (OXYGEN) [Concomitant]
  22. TRAZODONE HCL [Concomitant]
  23. METHADONE HCL [Concomitant]
  24. PERCOCET [Concomitant]
  25. CINRYZE [Suspect]
  26. XANAX [Concomitant]
  27. EPIPEN [Concomitant]
  28. ERA-TAB [Concomitant]
  29. LEVOTHYROXINE SODIUM [Concomitant]
  30. KLOR-CON [Concomitant]
  31. PHENERGAN [Concomitant]
  32. PREMARIN [Concomitant]
  33. SINGULAIR [Concomitant]

REACTIONS (4)
  - CONDITION AGGRAVATED [None]
  - HEREDITARY ANGIOEDEMA [None]
  - OFF LABEL USE [None]
  - STRESS [None]
